FAERS Safety Report 9945722 (Version 1)
Quarter: 2014Q1

REPORT INFORMATION
  Report Type: Report from Study
  Country: US (occurrence: US)
  Receive Date: 20140303
  Receipt Date: 20140303
  Transmission Date: 20141002
  Serious: No
  Sender: FDA-Public Use
  Company Number: US-ABBVIE-13P-163-1049625-00

PATIENT
  Age: 39 Year
  Sex: Female

DRUGS (4)
  1. HUMIRA [Suspect]
     Indication: CROHN^S DISEASE
     Dates: start: 201211
  2. ATENOLOL [Concomitant]
     Indication: SUPRAVENTRICULAR TACHYCARDIA
  3. TYLENOL [Concomitant]
     Indication: PAIN
  4. LOPERAMIDE [Concomitant]
     Indication: CROHN^S DISEASE
     Dosage: 2 MG X 2-6 TABLETS DAILY; AS NEEDED

REACTIONS (3)
  - Injection site pain [Not Recovered/Not Resolved]
  - Injection site urticaria [Not Recovered/Not Resolved]
  - Injection site pruritus [Not Recovered/Not Resolved]
